FAERS Safety Report 4883062-7 (Version None)
Quarter: 2006Q1

REPORT INFORMATION
  Report Type: 
  Country: None (occurrence: None)
  Receive Date: 20060118
  Receipt Date: 20051201
  Transmission Date: 20060701
  Serious: Yes (Hospitalization)
  Sender: FDA-Public Use
  Company Number: JP-BRISTOL-MYERS SQUIBB COMPANY-13221213

PATIENT
  Age: 55 Year
  Sex: Female

DRUGS (2)
  1. PARAPLATIN [Suspect]
     Indication: PERITONEAL CARCINOMA
     Route: 041
     Dates: start: 20050919, end: 20051019
  2. GEMZAR [Suspect]
     Indication: PERITONEAL CARCINOMA
     Route: 041
     Dates: start: 20050919, end: 20050926

REACTIONS (3)
  - DISSEMINATED INTRAVASCULAR COAGULATION [None]
  - FUNGAEMIA [None]
  - REVERSIBLE POSTERIOR LEUKOENCEPHALOPATHY SYNDROME [None]
